FAERS Safety Report 9328500 (Version 1)
Quarter: 2013Q2

REPORT INFORMATION
  Report Type: Spontaneous
  Country: US (occurrence: US)
  Receive Date: 20130604
  Receipt Date: 20130604
  Transmission Date: 20140414
  Serious: No
  Sender: FDA-Public Use
  Company Number: US-SANOFI-AVENTIS-2012SA060574

PATIENT
  Sex: Male

DRUGS (4)
  1. LANTUS [Suspect]
     Dosage: DOSAGE REPORTED AS 25-35 UNITS. CURRENTLY DOWN TO 30 UNITS
     Route: 058
  2. HUMALOG [Suspect]
     Route: 065
  3. ALL OTHER THERAPEUTIC PRODUCTS [Concomitant]
  4. FUROSEMIDE [Concomitant]

REACTIONS (5)
  - Weight decreased [Unknown]
  - Blood glucose decreased [Unknown]
  - Feeling cold [Unknown]
  - Cold sweat [Unknown]
  - Therapeutic response unexpected [Unknown]
